FAERS Safety Report 11619798 (Version 3)
Quarter: 2015Q4

REPORT INFORMATION
  Report Type: Spontaneous
  Country: JP (occurrence: JP)
  Receive Date: 20151012
  Receipt Date: 20151104
  Transmission Date: 20160304
  Serious: Yes (Hospitalization)
  Sender: FDA-Public Use
  Company Number: JP-PFIZER INC-2015315798

PATIENT
  Age: 33 Year
  Sex: Female
  Weight: 50 kg

DRUGS (12)
  1. TEGRETOL [Concomitant]
     Active Substance: CARBAMAZEPINE
     Indication: EPILEPSY
     Dosage: 800 MG, DAILY
     Route: 048
  2. FOSPHENYTOIN SODIUM. [Suspect]
     Active Substance: FOSPHENYTOIN SODIUM
     Indication: STATUS EPILEPTICUS
     Dosage: 1125 MG, UNK
     Route: 042
     Dates: start: 20130713, end: 20130713
  3. FOSPHENYTOIN SODIUM. [Suspect]
     Active Substance: FOSPHENYTOIN SODIUM
     Dosage: 375 MG, UNK
     Route: 042
     Dates: start: 20130714, end: 20130715
  4. DORMICUM [Concomitant]
     Active Substance: MIDAZOLAM\MIDAZOLAM HYDROCHLORIDE
     Indication: STATUS EPILEPTICUS
     Dosage: 50 MG, DAILY
     Route: 042
     Dates: start: 20130713, end: 20130719
  5. ROCEPHIN [Concomitant]
     Active Substance: CEFTRIAXONE SODIUM
     Indication: INFECTION
     Dosage: 1 G, DAILY
     Route: 041
     Dates: start: 20130714, end: 20130719
  6. KENKETU NONTHRON [Concomitant]
     Indication: DISSEMINATED INTRAVASCULAR COAGULATION
     Dosage: UNK, DAILY (1500)
     Route: 041
     Dates: start: 20150715
  7. LAMICTAL [Concomitant]
     Active Substance: LAMOTRIGINE
     Indication: EPILEPSY
     Dosage: 50 MG, DAILY
     Route: 048
     Dates: start: 20130614
  8. RECOMODULIN [Concomitant]
     Active Substance: THROMBOMODULIN ALFA
     Indication: DISSEMINATED INTRAVASCULAR COAGULATION
     Dosage: UNK, DAILY (25600)
     Route: 041
     Dates: start: 20150715
  9. CERCINE [Concomitant]
     Active Substance: DIAZEPAM
     Indication: STATUS EPILEPTICUS
     Dosage: 25 MG, DAILY
     Route: 042
     Dates: start: 20130713, end: 20130716
  10. FENTANYL. [Concomitant]
     Active Substance: FENTANYL
     Indication: STATUS EPILEPTICUS
     Dosage: 1 MG, DAILY
     Route: 042
     Dates: start: 20130714, end: 20130719
  11. KEPPRA [Concomitant]
     Active Substance: LEVETIRACETAM
     Indication: EPILEPSY
     Dosage: 3000 MG, DAILY
     Route: 048
  12. NOVAMIN [Concomitant]
     Active Substance: PROCHLORPERAZINE MALEATE
     Indication: ANTIEMETIC SUPPORTIVE CARE
     Dosage: 10 MG, DAILY
     Route: 030
     Dates: start: 20130714, end: 20130719

REACTIONS (1)
  - Spinocerebellar ataxia [Recovering/Resolving]

NARRATIVE: CASE EVENT DATE: 20130724
